FAERS Safety Report 5920424-0 (Version None)
Quarter: 2008Q4

REPORT INFORMATION
  Report Type: 
  Country: None (occurrence: None)
  Receive Date: 20081014
  Receipt Date: 20080930
  Transmission Date: 20090506
  Serious: Yes (Death, Hospitalization, Other)
  Sender: FDA-Public Use
  Company Number: 52997

PATIENT
  Age: 57 Year
  Sex: Female

DRUGS (1)
  1. CYCLOSPORINE [Suspect]
     Indication: RENAL TRANSPLANT

REACTIONS (12)
  - ASCITES [None]
  - BONE MARROW FAILURE [None]
  - EPSTEIN-BARR VIRUS ASSOCIATED LYMPHOPROLIFERATIVE DISORDER [None]
  - EPSTEIN-BARR VIRUS INFECTION [None]
  - EXTRAVASATION [None]
  - PAPILLOEDEMA [None]
  - PERITONEAL FLUID ANALYSIS ABNORMAL [None]
  - SKIN NECROSIS [None]
  - SKIN PAPILLOMA [None]
  - SKIN ULCER [None]
  - STAPHYLOCOCCAL SEPSIS [None]
  - TRANSAMINASES INCREASED [None]
